FAERS Safety Report 10089606 (Version 1)
Quarter: 2014Q2

REPORT INFORMATION
  Report Type: Spontaneous
  Country: GB (occurrence: GB)
  Receive Date: 20140421
  Receipt Date: 20140421
  Transmission Date: 20141212
  Serious: Yes (Hospitalization)
  Sender: FDA-Public Use
  Company Number: GB-MYLANLABS-2014S1008635

PATIENT
  Age: 92 Year
  Sex: Male

DRUGS (7)
  1. DOXYCYCLINE [Suspect]
     Indication: LOWER RESPIRATORY TRACT INFECTION
     Dosage: 200MG STAT THEN 100MG DAILY. TOTAL OF 4 DAYS OF TREATMENT TAKEN.
     Route: 048
     Dates: start: 20140318
  2. DOXYCYCLINE [Suspect]
     Indication: LOWER RESPIRATORY TRACT INFECTION
     Dosage: 200MG STAT THEN 100MG DAILY. TOTAL OF 4 DAYS OF TREATMENT TAKEN.
     Route: 048
     Dates: end: 20140321
  3. WARFARIN [Suspect]
     Indication: ATRIAL FIBRILLATION
     Dosage: VARIABLE ACCORDING TO INR. INR RANGE 2-3. DOSE ON ADMISSION: 2MG DAILY EXCEPT 1.5MG TUE + SAT
     Route: 048
     Dates: start: 20130408, end: 20140321
  4. ALLOPURINOL [Concomitant]
  5. AMLODIPINE [Concomitant]
  6. BISOPROLOL [Concomitant]
  7. FUROSEMIDE [Concomitant]

REACTIONS (2)
  - Upper gastrointestinal haemorrhage [Recovering/Resolving]
  - Potentiating drug interaction [Unknown]
